FAERS Safety Report 7708410-1 (Version None)
Quarter: 2011Q3

REPORT INFORMATION
  Report Type: 
  Country: None (occurrence: None)
  Receive Date: 20110825
  Receipt Date: 20110815
  Transmission Date: 20111222
  Serious: Yes (Other)
  Sender: FDA-Public Use
  Company Number: US-ELI_LILLY_AND_COMPANY-US201108005829

PATIENT
  Age: 11 Year
  Sex: Male

DRUGS (3)
  1. STRATTERA [Suspect]
     Dosage: 40 MG, QD
  2. STRATTERA [Suspect]
     Dosage: 20 MG, QD
  3. VYVANSE [Concomitant]

REACTIONS (3)
  - AGGRESSION [None]
  - ARTHRALGIA [None]
  - SELF INJURIOUS BEHAVIOUR [None]
